FAERS Safety Report 18343778 (Version 1)
Quarter: 2020Q4

REPORT INFORMATION
  Report Type: Spontaneous
  Country: US (occurrence: US)
  Receive Date: 20201002
  Receipt Date: 20201002
  Transmission Date: 20210114
  Serious: Yes (Hospitalization)
  Sender: FDA-Public Use
  Company Number: None

PATIENT
  Age: 65 Year
  Sex: Female

DRUGS (8)
  1. CALCIFEROL [Concomitant]
  2. CRUSH VIT C [Concomitant]
  3. DETROL [Concomitant]
     Active Substance: TOLTERODINE TARTRATE
  4. CEFUROXIME. [Concomitant]
     Active Substance: CEFUROXIME
  5. A-HYDROCORT [Concomitant]
     Active Substance: HYDROCORTISONE SODIUM SUCCINATE
  6. XELJANZ XR [Suspect]
     Active Substance: TOFACITINIB CITRATE
     Indication: COLITIS ULCERATIVE
     Dates: start: 20190505
  7. ASPIRIN. [Concomitant]
     Active Substance: ASPIRIN
  8. MESALAMINE. [Concomitant]
     Active Substance: MESALAMINE

REACTIONS (1)
  - COVID-19 [None]

NARRATIVE: CASE EVENT DATE: 20200901
